FAERS Safety Report 15947035 (Version 2)
Quarter: 2019Q3

REPORT INFORMATION
  Report Type: Spontaneous
  Country: US (occurrence: US)
  Receive Date: 20190211
  Receipt Date: 20190909
  Transmission Date: 20191004
  Serious: Yes (Hospitalization, Other)
  Sender: FDA-Public Use
  Company Number: US-PFIZER INC-2019050858

PATIENT
  Age: 56 Year
  Sex: Male
  Weight: 122 kg

DRUGS (2)
  1. SUTENT [Suspect]
     Active Substance: SUNITINIB MALATE
     Indication: CLEAR CELL RENAL CELL CARCINOMA
     Dosage: 50 MG, CYCLIC,(ONCE A DAY, 4 WEEKS ON AND 2 WEEKS OFF)
     Route: 048
     Dates: start: 201807, end: 2018
  2. SUTENT [Suspect]
     Active Substance: SUNITINIB MALATE
     Dosage: 50 MG, CYCLIC (ONCE DAILY FOR 28 DAYS AND THEN OFF FOR 14 DAYS)
     Route: 048
     Dates: start: 201808

REACTIONS (6)
  - Appendicitis perforated [Recovering/Resolving]
  - Lethargy [Recovered/Resolved]
  - Asthenia [Recovered/Resolved]
  - White blood cell count decreased [Unknown]
  - Skin ulcer [Recovered/Resolved]
  - Gait disturbance [Recovered/Resolved]

NARRATIVE: CASE EVENT DATE: 201810
